FAERS Safety Report 10685287 (Version 1)
Quarter: 2014Q4

REPORT INFORMATION
  Report Type: Spontaneous
  Country: US (occurrence: None)
  Receive Date: 20141230
  Receipt Date: 20141230
  Transmission Date: 20150529
  Serious: Yes (Life-Threatening, Hospitalization)
  Sender: FDA-Public Use
  Company Number: None

PATIENT
  Age: 72 Year
  Sex: Female
  Weight: 58.9 kg

DRUGS (8)
  1. IBUPROFEN. [Concomitant]
     Active Substance: IBUPROFEN
  2. LEVOFLOXACIN. [Concomitant]
     Active Substance: LEVOFLOXACIN
  3. TRASTUZUMAB [Suspect]
     Active Substance: TRASTUZUMAB
     Indication: NEOADJUVANT THERAPY
     Route: 042
     Dates: start: 20141120, end: 20141209
  4. CEPHALEXIN. [Concomitant]
     Active Substance: CEPHALEXIN
  5. PERTUZUMAB [Suspect]
     Active Substance: PERTUZUMAB
     Indication: BREAST CANCER STAGE III
     Route: 042
     Dates: start: 20141120, end: 20141209
  6. PERTUZUMAB [Suspect]
     Active Substance: PERTUZUMAB
     Indication: NEOADJUVANT THERAPY
     Route: 042
     Dates: start: 20141120, end: 20141209
  7. TRASTUZUMAB [Suspect]
     Active Substance: TRASTUZUMAB
     Indication: BREAST CANCER STAGE III
     Route: 042
     Dates: start: 20141120, end: 20141209
  8. ACETAMINOPHEN. [Concomitant]
     Active Substance: ACETAMINOPHEN

REACTIONS (3)
  - Septic shock [None]
  - Catheter site pain [None]
  - Breast cellulitis [None]

NARRATIVE: CASE EVENT DATE: 20141224
